FAERS Safety Report 7607946-1 (Version None)
Quarter: 2011Q3

REPORT INFORMATION
  Report Type: 
  Country: None (occurrence: None)
  Receive Date: 20110714
  Receipt Date: 20110203
  Transmission Date: 20111222
  Serious: Yes (Death, Other)
  Sender: FDA-Public Use
  Company Number: US-BAYER-201041721NA

PATIENT
  Age: 67 Year
  Sex: Male
  Weight: 91 kg

DRUGS (8)
  1. LIPITOR [Concomitant]
     Route: 048
  2. TRASYLOL [Suspect]
     Indication: CORONARY ARTERY BYPASS
     Dosage: UNK
     Route: 042
     Dates: start: 20050725
  3. ATIVAN [Concomitant]
     Dosage: 2 MG, QD
     Route: 048
  4. POTASSIUM [POTASSIUM] [Concomitant]
     Route: 048
  5. CARDENE [Concomitant]
     Dosage: 5MCG/KG PER HOUR
     Route: 042
     Dates: start: 20050725
  6. VERPAMIL HCL [Concomitant]
     Route: 048
  7. HYTRIN [Concomitant]
     Route: 048
  8. COUMADIN [Concomitant]

REACTIONS (11)
  - DEATH [None]
  - ANXIETY [None]
  - FEAR [None]
  - MULTI-ORGAN FAILURE [None]
  - EMOTIONAL DISTRESS [None]
  - UNEVALUABLE EVENT [None]
  - INJURY [None]
  - RENAL FAILURE [None]
  - STRESS [None]
  - PAIN [None]
  - ANHEDONIA [None]
